FAERS Safety Report 15795540 (Version 1)
Quarter: 2019Q1

REPORT INFORMATION
  Report Type: Spontaneous
  Country: US (occurrence: US)
  Receive Date: 20190107
  Receipt Date: 20190107
  Transmission Date: 20190417
  Serious: Yes (Disabling)
  Sender: FDA-Public Use
  Company Number: None

PATIENT
  Age: 58 Year
  Sex: Female
  Weight: 56.7 kg

DRUGS (7)
  1. NATURE-THROID [Concomitant]
     Active Substance: THYROID, PORCINE
  2. CREST GUM DETOXIFY [Suspect]
     Active Substance: STANNOUS FLUORIDE
     Indication: DENTAL PLAQUE
     Route: 048
     Dates: start: 20181101, end: 20181214
  3. CREST GUM DETOXIFY GENTLE WHITENING [Suspect]
     Active Substance: STANNOUS FLUORIDE
     Indication: TOOTH DISCOLOURATION
     Dosage: ?          QUANTITY:1 SQUIRT;?
     Route: 048
     Dates: start: 20181101, end: 20181214
  4. VITAMIN B COMPLEX [Concomitant]
     Active Substance: CYANOCOBALAMIN\DEXPANTHENOL\NIACINAMIDE\PYRIDOXINE HYDROCHLORIDE\RIBOFLAVIN 5^-PHOSPHATE SODIUM\THIAMINE HYDROCHLORIDE\VITAMIN B COMPLEX
  5. FISH OIL [Concomitant]
     Active Substance: FISH OIL
  6. VITAMIN D3W/K2 [Concomitant]
  7. MAGNESIUM [Concomitant]
     Active Substance: MAGNESIUM

REACTIONS (2)
  - Bronchospasm [None]
  - Dyspnoea [None]

NARRATIVE: CASE EVENT DATE: 20181101
